FAERS Safety Report 13129753 (Version 1)
Quarter: 2017Q1

REPORT INFORMATION
  Report Type: Spontaneous
  Country: US (occurrence: US)
  Receive Date: 20170119
  Receipt Date: 20170119
  Transmission Date: 20170428
  Serious: No
  Sender: FDA-Public Use
  Company Number: US-PFIZER INC-2017020944

PATIENT
  Sex: Female

DRUGS (1)
  1. ALAVERT ALLERGY [Suspect]
     Active Substance: LORATADINE
     Dosage: UNK

REACTIONS (5)
  - Insomnia [Unknown]
  - Feeling jittery [Unknown]
  - Logorrhoea [Unknown]
  - Respiratory disorder [Unknown]
  - Toothache [Unknown]
